FAERS Safety Report 23393757 (Version 4)
Quarter: 2024Q1

REPORT INFORMATION
  Report Type: Spontaneous
  Country: US (occurrence: US)
  Receive Date: 20240111
  Receipt Date: 20240127
  Transmission Date: 20240410
  Serious: No
  Sender: FDA-Public Use
  Company Number: US-002147023-NVSC2024US005961

PATIENT
  Sex: Female
  Weight: 19.2 kg

DRUGS (1)
  1. LUTATHERA [Suspect]
     Active Substance: LUTETIUM OXODOTREOTIDE LU-177
     Indication: Neuroendocrine tumour
     Dosage: 200 MCI
     Route: 042
     Dates: start: 20231031, end: 20231031

REACTIONS (2)
  - General physical health deterioration [Recovered/Resolved]
  - Influenza [Recovered/Resolved]
